FAERS Safety Report 6185414-4 (Version None)
Quarter: 2009Q2

REPORT INFORMATION
  Report Type: 
  Country: None (occurrence: None)
  Receive Date: 20090511
  Receipt Date: 20090429
  Transmission Date: 20091009
  Serious: Yes (Hospitalization, Other)
  Sender: FDA-Public Use
  Company Number: FR-BAYER-200919829GPV

PATIENT
  Age: 74 Year
  Sex: Male

DRUGS (16)
  1. FLUDARA [Suspect]
     Indication: DRUG USE FOR UNKNOWN INDICATION
     Dosage: 1ST CYCLE
     Route: 048
     Dates: start: 20090113, end: 20090115
  2. FLUDARA [Suspect]
     Dosage: 2ND CYCLE
     Route: 048
     Dates: start: 20090210, end: 20090212
  3. MABTHERA [Suspect]
     Indication: DRUG USE FOR UNKNOWN INDICATION
     Dosage: 1ST CYCLE
     Route: 042
     Dates: start: 20090113, end: 20090113
  4. MABTHERA [Suspect]
     Dosage: 2ND CYCLE
     Route: 042
     Dates: start: 20090210, end: 20090210
  5. ENDOXAN [Suspect]
     Indication: DRUG USE FOR UNKNOWN INDICATION
     Dosage: 2ND CYCLE
     Route: 048
     Dates: start: 20090210, end: 20090212
  6. ENDOXAN [Suspect]
     Dosage: 1ST CYCLE
     Route: 048
     Dates: start: 20090113, end: 20090115
  7. PLAVIX [Concomitant]
  8. TENORMIN [Concomitant]
  9. AMLODIPINE BESYLATE [Concomitant]
  10. MONICOR [Concomitant]
  11. VASTAREL [Concomitant]
  12. NITROGLYCERIN [Concomitant]
  13. LIPUR [Concomitant]
  14. TOCO [Concomitant]
  15. ACTONEL [Concomitant]
  16. LEXOMIL [Concomitant]

REACTIONS (2)
  - FEBRILE NEUTROPENIA [None]
  - POLYNEUROPATHY [None]
